FAERS Safety Report 9235449 (Version 1)
Quarter: 2013Q1

REPORT INFORMATION
  Report Type: Spontaneous
  Country: US (occurrence: None)
  Receive Date: 20121031
  Receipt Date: 20121031
  Transmission Date: 20140127
  Serious: Yes (Hospitalization, Other)
  Sender: FDA-Public Use
  Company Number: PHEH2012US015888

PATIENT
  Age: 48 Year
  Sex: Female
  Weight: 81.3 kg

DRUGS (3)
  1. GILENYA [Suspect]
     Indication: MULTIPLE SCLEROSIS
     Route: 048
     Dates: start: 20120801
  2. ESTRACE (ESTRADIOL) [Concomitant]
  3. ANALGESICS (NO INGREDIENTS/SUBSTANCES) [Concomitant]

REACTIONS (1)
  - Heart rate decreased [None]
